FAERS Safety Report 7746209-0 (Version None)
Quarter: 2011Q3

REPORT INFORMATION
  Report Type: 
  Country: None (occurrence: None)
  Receive Date: 20110908
  Receipt Date: 20110908
  Transmission Date: 20111222
  Serious: Yes (Hospitalization)
  Sender: FDA-Public Use
  Company Number: None

PATIENT
  Age: 65 Year
  Sex: Male

DRUGS (1)
  1. HUMAN ALBUMIN GRIFOLS 20% [Suspect]
     Indication: PLASMAPHERESIS
     Dosage: 4.5% 3L., INTRAVENOUS
     Route: 042

REACTIONS (3)
  - THROAT TIGHTNESS [None]
  - COUGH [None]
  - STRIDOR [None]
